FAERS Safety Report 4576516-4 (Version None)
Quarter: 2005Q1

REPORT INFORMATION
  Report Type: 
  Country: None (occurrence: None)
  Receive Date: 20050119
  Receipt Date: 20040414
  Transmission Date: 20050727
  Serious: Yes (Hospitalization)
  Sender: FDA-Public Use
  Company Number: A03200401172

PATIENT
  Age: 56 Year
  Sex: Female
  Weight: 69.8539 kg

DRUGS (4)
  1. PLAVIX [Suspect]
     Indication: CEREBRAL HAEMORRHAGE
     Dosage: 75 MG QD - ORAL
     Route: 048
     Dates: start: 20030801
  2. SERTRALINE HYDROCHLORIDE [Concomitant]
  3. ATENOLOL [Concomitant]
  4. LEVOTHYROXINE SODIUM [Concomitant]

REACTIONS (6)
  - CONTUSION [None]
  - HEADACHE [None]
  - INFLUENZA LIKE ILLNESS [None]
  - LOSS OF CONSCIOUSNESS [None]
  - RASH [None]
  - SPEECH DISORDER [None]
